FAERS Safety Report 4928859-X (Version None)
Quarter: 2006Q1

REPORT INFORMATION
  Report Type: 
  Country: None (occurrence: None)
  Receive Date: 20060223
  Receipt Date: 20060216
  Transmission Date: 20060701
  Serious: Yes (Other)
  Sender: FDA-Public Use
  Company Number: 2006024108

PATIENT
  Age: 2 Year

DRUGS (1)
  1. ZOLOFT [Suspect]
     Indication: ILL-DEFINED DISORDER
     Dosage: 1700 MG
     Dates: start: 20060201

REACTIONS (1)
  - ACCIDENTAL DRUG INTAKE BY CHILD [None]
